FAERS Safety Report 7735090-1 (Version None)
Quarter: 2011Q3

REPORT INFORMATION
  Report Type: 
  Country: None (occurrence: None)
  Receive Date: 20110907
  Receipt Date: 20110901
  Transmission Date: 20111222
  Serious: Yes (Hospitalization, Other)
  Sender: FDA-Public Use
  Company Number: US-ELI_LILLY_AND_COMPANY-US201106006339

PATIENT
  Sex: Male

DRUGS (6)
  1. OMEPRAZOLE [Concomitant]
     Dosage: 20 MG, QD
     Route: 065
  2. RAMIPRIL [Concomitant]
     Dosage: 10 MG, QD
     Route: 065
  3. EFFIENT [Suspect]
     Indication: PERCUTANEOUS CORONARY INTERVENTION
     Dosage: 10 MG, QD
     Dates: start: 20101109, end: 20110425
  4. QUESTRAN [Concomitant]
     Dosage: 4 GM, UNKNOWN
     Route: 065
  5. ASPIRIN [Concomitant]
     Dosage: 325 MG, UNKNOWN
     Route: 065
  6. URSODIOL [Concomitant]
     Dosage: 300 MG, EVERY 6 HRS
     Route: 065

REACTIONS (1)
  - JAUNDICE [None]
